FAERS Safety Report 5320416-9 (Version None)
Quarter: 2007Q2

REPORT INFORMATION
  Report Type: 
  Country: None (occurrence: None)
  Receive Date: 20070509
  Receipt Date: 20070503
  Transmission Date: 20071010
  Serious: Yes (Hospitalization)
  Sender: FDA-Public Use
  Company Number: B0469723A

PATIENT
  Age: 27 Year
  Sex: Female

DRUGS (12)
  1. ACETAMINOPHEN [Suspect]
     Dosage: 10TAB PER DAY
     Route: 048
     Dates: start: 20070419, end: 20070419
  2. PANOCOD [Suspect]
     Dosage: 17TAB PER DAY
     Route: 048
     Dates: start: 20070419, end: 20070419
  3. DEXOFEN [Suspect]
     Dosage: 3TAB PER DAY
     Route: 048
     Dates: start: 20070419, end: 20070419
  4. ACETYLCYSTEINE [Suspect]
     Route: 042
     Dates: start: 20070419, end: 20070419
  5. BRICANYL [Concomitant]
  6. FLUOXETINE [Concomitant]
  7. OMEPRAZOLE [Concomitant]
  8. ZOLPIDEM TARTRATE [Concomitant]
     Dosage: 1TAB PER DAY
  9. AEROSPORIN [Concomitant]
  10. PROPAVAN [Concomitant]
     Dosage: 2TAB PER DAY
  11. SOBRIL [Concomitant]
  12. PULMICORT [Concomitant]

REACTIONS (7)
  - CHEST DISCOMFORT [None]
  - ERYTHEMA [None]
  - OEDEMA MOUTH [None]
  - PHARYNGEAL OEDEMA [None]
  - POISONING [None]
  - RASH [None]
  - URTICARIA [None]
